FAERS Safety Report 8481624-1 (Version None)
Quarter: 2012Q3

REPORT INFORMATION
  Report Type: 
  Country: None (occurrence: None)
  Receive Date: 20120702
  Receipt Date: 20120627
  Transmission Date: 20120928
  Serious: Yes (Other)
  Sender: FDA-Public Use
  Company Number: CN-BAYER-2012-063585

PATIENT
  Age: 46 Year
  Sex: Male

DRUGS (2)
  1. AVELOX [Suspect]
     Indication: LUNG INFECTION
     Dosage: 400 MG, QD, 80 DROPS /MIN.
     Route: 042
  2. ANTIINFECTIVES [Concomitant]

REACTIONS (3)
  - TYPHUS [None]
  - STEVENS-JOHNSON SYNDROME [None]
  - PRURITUS [None]
